FAERS Safety Report 10266145 (Version 1)
Quarter: 2014Q2

REPORT INFORMATION
  Report Type: Spontaneous
  Country: US (occurrence: US)
  Receive Date: 20140627
  Receipt Date: 20140627
  Transmission Date: 20141212
  Serious: Yes (Hospitalization)
  Sender: FDA-Public Use
  Company Number: US-B.I. PHARMACEUTICALS,INC./RIDGEFIELD-2014-BI-28873BP

PATIENT
  Age: 71 Year
  Sex: Female
  Weight: 56.2 kg

DRUGS (14)
  1. SPIRIVA [Suspect]
     Indication: CHRONIC OBSTRUCTIVE PULMONARY DISEASE
     Dosage: 18 MCG
     Route: 055
     Dates: start: 2011
  2. POTASSIUM [Concomitant]
     Indication: BLOOD POTASSIUM DECREASED
     Dosage: 20 MEQ
     Route: 048
  3. CALCIUM WITH VITAMIN D [Concomitant]
     Route: 048
  4. ASPIRIN [Concomitant]
     Dosage: 81 MG
     Route: 048
  5. MAGNESIUM [Concomitant]
     Indication: BLOOD MAGNESIUM DECREASED
     Dosage: 200 MEQ
     Route: 048
  6. PRAVASTATIN [Concomitant]
     Indication: BLOOD CHOLESTEROL INCREASED
     Dosage: 80 MG
     Route: 048
  7. ONDANSETRON [Concomitant]
     Indication: NAUSEA
     Dosage: 12 MG
     Route: 048
  8. LOPERAMIDE [Concomitant]
     Indication: DIARRHOEA
     Route: 048
  9. SYMBICORT [Concomitant]
     Indication: CHRONIC OBSTRUCTIVE PULMONARY DISEASE
     Route: 055
  10. TIMOLOL MALEATE [Concomitant]
     Indication: GLAUCOMA
     Dosage: FORMULATION : EYE DROPS
     Route: 050
  11. LATANOPROST [Concomitant]
     Indication: GLAUCOMA
     Dosage: FORMULATION: EYE DROPS, DOSE PER APPLICATION : 0.005%
     Route: 050
  12. OMEPRAZOLE [Concomitant]
     Indication: GASTROOESOPHAGEAL REFLUX DISEASE
     Dosage: 40 MG
     Route: 048
  13. CITALOPRAM [Concomitant]
     Indication: ANXIETY
     Dosage: 20 MG
     Route: 048
  14. FUROSEMIDE [Concomitant]
     Indication: CARDIAC FAILURE CONGESTIVE
     Dosage: 80 MG
     Route: 048
     Dates: start: 2008

REACTIONS (8)
  - Fall [Recovered/Resolved]
  - Hip fracture [Recovered/Resolved]
  - Lower limb fracture [Recovered/Resolved]
  - Hand fracture [Recovered/Resolved]
  - Lymphoedema [Not Recovered/Not Resolved]
  - Renal failure chronic [Not Recovered/Not Resolved]
  - Visual impairment [Not Recovered/Not Resolved]
  - Bone pain [Not Recovered/Not Resolved]
